FAERS Safety Report 10591571 (Version 1)
Quarter: 2014Q4

REPORT INFORMATION
  Report Type: Spontaneous
  Country: US (occurrence: US)
  Receive Date: 20141118
  Receipt Date: 20141118
  Transmission Date: 20150529
  Serious: No
  Sender: FDA-Public Use
  Company Number: US-PFIZER INC-2014317245

PATIENT
  Age: 64 Year
  Sex: Male
  Weight: 136 kg

DRUGS (2)
  1. PRISTIQ EXTENDED RELEASE [Suspect]
     Active Substance: DESVENLAFAXINE SUCCINATE
     Indication: DEPRESSION
     Dosage: 50 MG, 1X/DAY
     Dates: start: 201411
  2. ESCITALOPRAM [Suspect]
     Active Substance: ESCITALOPRAM OXALATE
     Indication: DEPRESSION
     Dosage: 10 MG, 1X/DAY
     Dates: start: 201411, end: 201411

REACTIONS (3)
  - Insomnia [Not Recovered/Not Resolved]
  - Tardive dyskinesia [Unknown]
  - Tic [Unknown]

NARRATIVE: CASE EVENT DATE: 201411
